FAERS Safety Report 14562327 (Version 1)
Quarter: 2018Q1

REPORT INFORMATION
  Report Type: Spontaneous
  Country: US (occurrence: US)
  Receive Date: 20180221
  Receipt Date: 20180221
  Transmission Date: 20180509
  Serious: Yes (Other)
  Sender: FDA-Public Use
  Company Number: None

PATIENT
  Age: 43 Year
  Sex: Female

DRUGS (1)
  1. ESTRADIOL. [Suspect]
     Active Substance: ESTRADIOL
     Indication: HORMONE REPLACEMENT THERAPY
     Dosage: ?          OTHER FREQUENCY:TWICE A WEEK;?
     Route: 062
     Dates: start: 20180129, end: 20180220

REACTIONS (2)
  - Application site reaction [None]
  - Product quality issue [None]

NARRATIVE: CASE EVENT DATE: 20180220
